FAERS Safety Report 21314063 (Version 2)
Quarter: 2022Q3

REPORT INFORMATION
  Report Type: Report from Study
  Country: PT (occurrence: PT)
  Receive Date: 20220909
  Receipt Date: 20220929
  Transmission Date: 20221027
  Serious: Yes (Other)
  Sender: FDA-Public Use
  Company Number: PT-ABBVIE-22K-130-4532846-00

PATIENT
  Age: 76 Year
  Sex: Male

DRUGS (9)
  1. CARBIDOPA\LEVODOPA [Suspect]
     Active Substance: CARBIDOPA\LEVODOPA
     Indication: Parkinson^s disease
     Dosage: 20 MG + 5 MG MORN:7.5;MAINT:2.6CC/H;EXTRA:1CC
     Route: 050
     Dates: start: 20210831, end: 2022
  2. CARBIDOPA\LEVODOPA [Suspect]
     Active Substance: CARBIDOPA\LEVODOPA
     Dosage: 20 MG + 5 MG MORN:18.5;MAINT:6.7CC/H;EXTRA:4CC
     Route: 050
     Dates: start: 2022
  3. SINEMET CR [Concomitant]
     Active Substance: CARBIDOPA\LEVODOPA
     Indication: Product used for unknown indication
     Dosage: AT 10PM?1 TABLET
     Route: 048
  4. CLOZAPINE [Concomitant]
     Active Substance: CLOZAPINE
     Indication: Product used for unknown indication
     Dosage: 56.25 MILLIGRAM
     Route: 048
  5. CLOZAPINE [Concomitant]
     Active Substance: CLOZAPINE
     Indication: Product used for unknown indication
     Dosage: 1/4 AT 3PM 2 TABLETS AT 10PM
     Route: 048
  6. RIVASTIGMINE [Concomitant]
     Active Substance: RIVASTIGMINE
     Indication: Product used for unknown indication
     Route: 062
  7. TRAZODONE [Concomitant]
     Active Substance: TRAZODONE HYDROCHLORIDE
     Indication: Product used for unknown indication
     Dosage: AT 10PM?1 TABLET
     Route: 048
  8. PAROXETINE [Concomitant]
     Active Substance: PAROXETINE
     Indication: Product used for unknown indication
     Dosage: AT 7H30AM?1 TABLET
     Route: 048
  9. MEMANTINE [Concomitant]
     Active Substance: MEMANTINE
     Indication: Product used for unknown indication
     Dosage: AT 7H30 AM?1 TABLET
     Route: 048

REACTIONS (2)
  - Urinary tract infection [Recovered/Resolved]
  - General physical condition abnormal [Recovered/Resolved]

NARRATIVE: CASE EVENT DATE: 20220831
